FAERS Safety Report 11328464 (Version 1)
Quarter: 2015Q3

REPORT INFORMATION
  Report Type: Spontaneous
  Country: US (occurrence: US)
  Receive Date: 20150731
  Receipt Date: 20150731
  Transmission Date: 20151125
  Serious: Yes (Hospitalization)
  Sender: FDA-Public Use
  Company Number: US-AKORN PHARMACEUTICALS-2015AKN00434

PATIENT
  Sex: Male
  Weight: 115 kg

DRUGS (7)
  1. VANCOMYCIN [Concomitant]
     Active Substance: VANCOMYCIN
     Indication: CELLULITIS OF MALE EXTERNAL GENITAL ORGAN
  2. GENTAMICIN. [Concomitant]
     Active Substance: GENTAMICIN
     Indication: CELLULITIS OF MALE EXTERNAL GENITAL ORGAN
  3. CLINDAMYCIN [Suspect]
     Active Substance: CLINDAMYCIN\CLINDAMYCIN PHOSPHATE
     Indication: CELLULITIS OF MALE EXTERNAL GENITAL ORGAN
     Dosage: 900 MG, 3X/DAY
  4. ASPIRIN. [Concomitant]
     Active Substance: ASPIRIN
  5. PROBIOTICS [Concomitant]
     Active Substance: PROBIOTICS NOS
  6. TERBINAFINE. [Suspect]
     Active Substance: TERBINAFINE
     Dosage: UNK
  7. CEFTAROLINE [Suspect]
     Active Substance: CEFTAROLINE
     Indication: CELLULITIS OF MALE EXTERNAL GENITAL ORGAN
     Dosage: 600 MG, EVERY 12 HOURS

REACTIONS (2)
  - Abdominal pain [Recovered/Resolved]
  - Agranulocytosis [Recovered/Resolved]
